FAERS Safety Report 8445766-9 (Version None)
Quarter: 2012Q2

REPORT INFORMATION
  Report Type: 
  Country: None (occurrence: None)
  Receive Date: 20120618
  Receipt Date: 20120611
  Transmission Date: 20120825
  Serious: Yes (Other)
  Sender: FDA-Public Use
  Company Number: JP-GLAXOSMITHKLINE-B0808422A

PATIENT
  Age: 29 Year
  Sex: Female

DRUGS (4)
  1. CEFTRIAXONE SODIUM [Concomitant]
     Indication: MENINGITIS ASEPTIC
  2. UNKNOWN NSAID [Concomitant]
  3. ZOVIRAX [Suspect]
     Indication: MENINGITIS ASEPTIC
     Route: 048
  4. VANCOMYCIN HYDROCHLORIDE [Concomitant]
     Indication: MENINGITIS ASEPTIC
     Route: 065

REACTIONS (8)
  - NAUSEA [None]
  - ACUTE DISSEMINATED ENCEPHALOMYELITIS [None]
  - NEUROMYELITIS OPTICA [None]
  - NYSTAGMUS [None]
  - ANORECTAL DISORDER [None]
  - ILLUSION [None]
  - DYSLALIA [None]
  - MULTIPLE SCLEROSIS [None]
